FAERS Safety Report 4514141-1 (Version None)
Quarter: 2004Q4

REPORT INFORMATION
  Report Type: 
  Country: None (occurrence: None)
  Receive Date: 20041124
  Receipt Date: 20041111
  Transmission Date: 20050328
  Serious: Yes (Hospitalization)
  Sender: FDA-Public Use
  Company Number: 2004UW23446

PATIENT
  Age: 43 Year
  Sex: Male

DRUGS (3)
  1. CRESTOR [Suspect]
     Indication: BLOOD CHOLESTEROL
     Dosage: 10 MG DAILY PO
     Route: 048
     Dates: start: 20030501
  2. INSULIN [Concomitant]
  3. ALTACE [Concomitant]

REACTIONS (3)
  - MYOCARDIAL INFARCTION [None]
  - PROTEIN URINE PRESENT [None]
  - UNEXPECTED THERAPEUTIC DRUG EFFECT [None]
